FAERS Safety Report 17591205 (Version 1)
Quarter: 2020Q1

REPORT INFORMATION
  Report Type: Spontaneous
  Country: US (occurrence: US)
  Receive Date: 20200326
  Receipt Date: 20200326
  Transmission Date: 20200409
  Serious: Yes (Hospitalization)
  Sender: FDA-Public Use
  Company Number: None

PATIENT
  Sex: Male

DRUGS (1)
  1. SILDENAFIL 10MG/ML SUSP [Suspect]
     Active Substance: SILDENAFIL
     Indication: NEWBORN PERSISTENT PULMONARY HYPERTENSION
     Dosage: ?          OTHER FREQUENCY:Q6HRS ;?

REACTIONS (1)
  - Respiratory distress [None]

NARRATIVE: CASE EVENT DATE: 201906
